FAERS Safety Report 20430493 (Version 1)
Quarter: 2022Q1

REPORT INFORMATION
  Report Type: Spontaneous
  Country: US (occurrence: US)
  Receive Date: 20220204
  Receipt Date: 20220204
  Transmission Date: 20220423
  Serious: No
  Sender: FDA-Public Use
  Company Number: US-PFIZER INC-2021555827

PATIENT
  Age: 67 Year
  Sex: Female

DRUGS (1)
  1. NEURONTIN [Suspect]
     Active Substance: GABAPENTIN
     Indication: Headache
     Dosage: UNK

REACTIONS (2)
  - Off label use [Unknown]
  - Loss of personal independence in daily activities [Unknown]
